FAERS Safety Report 8093266-0 (Version None)
Quarter: 2012Q1

REPORT INFORMATION
  Report Type: 
  Country: None (occurrence: None)
  Receive Date: 20120128
  Receipt Date: 20111029
  Transmission Date: 20120608
  Serious: No
  Sender: FDA-Public Use
  Company Number: US-ABBOTT-11P-163-0732361-00

PATIENT
  Age: 38 Year
  Sex: Female

DRUGS (7)
  1. MAG [Concomitant]
     Indication: PRODUCT USED FOR UNKNOWN INDICATION
  2. IRON [Concomitant]
     Indication: PRODUCT USED FOR UNKNOWN INDICATION
  3. HUMIRA [Suspect]
     Indication: CROHN'S DISEASE
     Dosage: WEEKLY
     Dates: start: 20110101
  4. VITAMIN D [Concomitant]
     Indication: PRODUCT USED FOR UNKNOWN INDICATION
  5. VIT C [Concomitant]
     Indication: PRODUCT USED FOR UNKNOWN INDICATION
  6. MERCAPTOPURINE [Concomitant]
     Indication: PRODUCT USED FOR UNKNOWN INDICATION
     Dosage: DAILY
  7. ASACOL [Concomitant]
     Indication: PRODUCT USED FOR UNKNOWN INDICATION

REACTIONS (11)
  - NIGHT SWEATS [None]
  - HYPOAESTHESIA [None]
  - CROHN'S DISEASE [None]
  - PYREXIA [None]
  - DRUG INEFFECTIVE [None]
  - PARAESTHESIA [None]
  - RECTAL ABSCESS [None]
  - DIARRHOEA [None]
  - ABDOMINAL PAIN [None]
  - MUSCLE SPASMS [None]
  - PAIN [None]
